FAERS Safety Report 12469434 (Version 2)
Quarter: 2016Q2

REPORT INFORMATION
  Report Type: Spontaneous
  Country: US (occurrence: US)
  Receive Date: 20160615
  Receipt Date: 20160628
  Transmission Date: 20160815
  Serious: Yes (Other)
  Sender: FDA-Public Use
  Company Number: US-PFIZER INC-2016294058

PATIENT
  Age: 24 Year
  Sex: Female

DRUGS (4)
  1. EPINEPHRINE. [Suspect]
     Active Substance: EPINEPHRINE
     Indication: KOUNIS SYNDROME
     Dosage: 0.3 MG, (1:1000)
     Route: 030
  2. BENADRYL [Concomitant]
     Active Substance: DIPHENHYDRAMINE HYDROCHLORIDE
     Dosage: UNK
  3. SOLU-MEDROL [Concomitant]
     Active Substance: METHYLPREDNISOLONE SODIUM SUCCINATE
     Dosage: UNK
  4. FAMOTIDINE. [Concomitant]
     Active Substance: FAMOTIDINE
     Dosage: UNK

REACTIONS (1)
  - Reversible cerebral vasoconstriction syndrome [Recovered/Resolved]
